FAERS Safety Report 18497902 (Version 1)
Quarter: 2020Q4

REPORT INFORMATION
  Report Type: Spontaneous
  Country: US (occurrence: US)
  Receive Date: 20201112
  Receipt Date: 20201112
  Transmission Date: 20210114
  Serious: No
  Sender: FDA-Public Use
  Company Number: US-THERAPEUTICSMD-2020TMD04372

PATIENT
  Age: 50 Year
  Sex: Female
  Weight: 54.42 kg

DRUGS (4)
  1. TOPICAL MEDICATION FOR HAIR LOSS [Concomitant]
  2. BIJUVA [Suspect]
     Active Substance: ESTRADIOL\PROGESTERONE
     Indication: PROGESTERONE DECREASED
     Dosage: 1/100 MG (1 CAPSULE), 1X/DAY IN THE EVENING
     Route: 048
     Dates: start: 20201002
  3. BIJUVA [Suspect]
     Active Substance: ESTRADIOL\PROGESTERONE
     Indication: BLOOD OESTROGEN DECREASED
  4. INFRARED RED LIGHT CAP [Concomitant]

REACTIONS (4)
  - Dizziness [Not Recovered/Not Resolved]
  - Off label use [Not Recovered/Not Resolved]
  - Hot flush [Not Recovered/Not Resolved]
  - Alopecia [Not Recovered/Not Resolved]

NARRATIVE: CASE EVENT DATE: 202010
